FAERS Safety Report 23194153 (Version 7)
Quarter: 2024Q2

REPORT INFORMATION
  Report Type: Report from Study
  Country: US (occurrence: US)
  Receive Date: 20231117
  Receipt Date: 20240625
  Transmission Date: 20240716
  Serious: Yes (Hospitalization)
  Sender: FDA-Public Use
  Company Number: US-ACADIA PHARMACEUTICALS INC.-ACA-2023-TRF-004434

PATIENT
  Age: 17 Year
  Sex: Female
  Weight: 58.957 kg

DRUGS (15)
  1. DAYBUE [Suspect]
     Active Substance: TROFINETIDE
     Indication: Rett syndrome
     Dosage: 30 MILLILITER, BID VIA G-TUBE
     Dates: start: 20230917
  2. DAYBUE [Suspect]
     Active Substance: TROFINETIDE
     Dosage: 60 MILLILITER, BID
     Route: 065
  3. DAYBUE [Suspect]
     Active Substance: TROFINETIDE
     Dosage: 50 MILLILITER, BID VIA G-TUBE
  4. DAYBUE [Suspect]
     Active Substance: TROFINETIDE
     Dosage: 60 MILLILITER, BID VIA G-TUBE
  5. DAYBUE [Suspect]
     Active Substance: TROFINETIDE
     Dosage: 60 MILLILITER, BID VIA G-TUBE
  6. BACLOFEN [Concomitant]
     Active Substance: BACLOFEN
     Indication: Seizure
     Dosage: 25 MILLIGRAM, TID EVERY 8 HOURS
  7. GABAPENTIN [Concomitant]
     Active Substance: GABAPENTIN
     Dosage: 3 MILLILITER, TID EVERY 8 HOURS
  8. BENZTROPINE [Concomitant]
     Active Substance: BENZTROPINE
     Dosage: 1 MILLIGRAM, BID
  9. VITAMIN D3 [Concomitant]
     Active Substance: CHOLECALCIFEROL
     Dosage: 10MCG/ML
  10. CLONAZEPAM [Concomitant]
     Active Substance: CLONAZEPAM
     Dosage: 4 MILLIGRAM, BID
  11. CLONIDINE [Concomitant]
     Active Substance: CLONIDINE
     Dosage: 8 MICROGRAM, BID (20MCG/ML)
  12. ATIVAN [Concomitant]
     Active Substance: LORAZEPAM
     Dosage: 0.5MG AS NEEDED
  13. ZOLPIDEM [Concomitant]
     Active Substance: ZOLPIDEM TARTRATE
     Dosage: 12.5 MG ONCE AT NIGHT
  14. QUETIAPINE [Concomitant]
     Active Substance: QUETIAPINE
     Dosage: 150 MILLIGRAM EVERY MORNING THEN 50MG AFTER 4 HOURS THEN 300MG AT NIGHT
  15. TRILEPTAL [Concomitant]
     Active Substance: OXCARBAZEPINE
     Dosage: 7.5MG BID

REACTIONS (12)
  - Constipation [Not Recovered/Not Resolved]
  - Constipation [Not Recovered/Not Resolved]
  - Screaming [Not Recovered/Not Resolved]
  - Screaming [Unknown]
  - Poor quality sleep [Unknown]
  - Faeces soft [Unknown]
  - Constipation [Not Recovered/Not Resolved]
  - Crying [Not Recovered/Not Resolved]
  - Diarrhoea [Not Recovered/Not Resolved]
  - Diarrhoea [Not Recovered/Not Resolved]
  - Diarrhoea [Recovered/Resolved]
  - Diarrhoea [Not Recovered/Not Resolved]

NARRATIVE: CASE EVENT DATE: 20230601
